FAERS Safety Report 6707067-6 (Version None)
Quarter: 2010Q2

REPORT INFORMATION
  Report Type: 
  Country: None (occurrence: None)
  Receive Date: 20100423
  Receipt Date: 20091201
  Transmission Date: 20101027
  Serious: No
  Sender: FDA-Public Use
  Company Number: ALL1-2009-03880

PATIENT

DRUGS (1)
  1. VYVANSE [Suspect]
     Dosage: ORAL
     Route: 048
     Dates: start: 20090101

REACTIONS (3)
  - EXCESSIVE EYE BLINKING [None]
  - RESPIRATION ABNORMAL [None]
  - TIC [None]
